FAERS Safety Report 18758431 (Version 2)
Quarter: 2025Q2

REPORT INFORMATION
  Report Type: Spontaneous
  Country: US (occurrence: US)
  Receive Date: 20210120
  Receipt Date: 20250627
  Transmission Date: 20250717
  Serious: Yes (Hospitalization)
  Sender: AUROBINDO
  Company Number: US-AUROBINDO-AUR-APL-2021-002082

PATIENT
  Age: 78 Year
  Sex: Male

DRUGS (6)
  1. METHYLPREDNISOLONE SODIUM SUCCINATE [Suspect]
     Active Substance: METHYLPREDNISOLONE SODIUM SUCCINATE
     Indication: Immune-mediated enterocolitis
     Route: 042
  2. PREDNISONE [Suspect]
     Active Substance: PREDNISONE
     Indication: Immune-mediated enterocolitis
     Route: 048
  3. IPILIMUMAB [Concomitant]
     Active Substance: IPILIMUMAB
     Indication: Colon cancer metastatic
     Route: 065
  4. NIVOLUMAB [Concomitant]
     Active Substance: NIVOLUMAB
     Indication: Colon cancer metastatic
     Route: 065
  5. INFLIXIMAB [Concomitant]
     Active Substance: INFLIXIMAB
     Indication: Immune-mediated enterocolitis
     Route: 065
  6. INFLIXIMAB [Concomitant]
     Active Substance: INFLIXIMAB
     Route: 065

REACTIONS (1)
  - Treatment failure [Unknown]
